FAERS Safety Report 4366010-8 (Version None)
Quarter: 2004Q2

REPORT INFORMATION
  Report Type: 
  Country: None (occurrence: None)
  Receive Date: 20040520
  Receipt Date: 20040512
  Transmission Date: 20050107
  Serious: Yes (Life-Threatening, Hospitalization, Disabling, Other)
  Sender: FDA-Public Use
  Company Number: 2004213462NO

PATIENT
  Sex: 0

DRUGS (1)
  1. PROSTIVAS (ALPROSTADIL)SOLUTION, STERILE, 500UG/ML [Suspect]
     Indication: CARDIAC FAILURE
     Dosage: IV
     Route: 042

REACTIONS (5)
  - CONVULSION [None]
  - LEUKOENCEPHALOPATHY [None]
  - MEDICATION ERROR [None]
  - NEUROTOXICITY [None]
  - OVERDOSE [None]
